FAERS Safety Report 6184228-9 (Version None)
Quarter: 2009Q2

REPORT INFORMATION
  Report Type: 
  Country: None (occurrence: None)
  Receive Date: 20090508
  Receipt Date: 20090326
  Transmission Date: 20091009
  Serious: Yes (Other)
  Sender: FDA-Public Use
  Company Number: PHHY2009GB17158

PATIENT

DRUGS (1)
  1. EXJADE [Suspect]
     Indication: THALASSAEMIA

REACTIONS (2)
  - BLOOD CREATININE INCREASED [None]
  - RENAL TUBULAR DISORDER [None]
